FAERS Safety Report 4850816-2 (Version None)
Quarter: 2005Q4

REPORT INFORMATION
  Report Type: 
  Country: None (occurrence: None)
  Receive Date: 20051212
  Receipt Date: 20051130
  Transmission Date: 20060501
  Serious: Yes (Death, Other)
  Sender: FDA-Public Use
  Company Number: DE-JNJFOC-20051103704

PATIENT
  Sex: Female

DRUGS (5)
  1. DURAGESIC-100 [Suspect]
     Route: 062
     Dates: start: 20050401, end: 20051010
  2. RISPERDAL [Suspect]
     Indication: DEMENTIA
     Route: 048
  3. MELPERON [Concomitant]
     Indication: DEMENTIA
     Route: 048
  4. CAPTOFLUX [Concomitant]
     Route: 065
  5. REMINYL [Concomitant]
     Indication: DEMENTIA
     Route: 048

REACTIONS (4)
  - ILEUS [None]
  - MEGACOLON [None]
  - SEPSIS [None]
  - URINARY TRACT INFECTION [None]
